FAERS Safety Report 25245596 (Version 1)
Quarter: 2025Q2

REPORT INFORMATION
  Report Type: Spontaneous
  Country: US (occurrence: None)
  Receive Date: 20250427
  Receipt Date: 20250427
  Transmission Date: 20250716
  Serious: Yes (unspecified)
  Sender: FDA-CTU
  Company Number: None

PATIENT
  Age: 29 Year
  Sex: Female
  Weight: 83.25 kg

DRUGS (3)
  1. KYBELLA [Suspect]
     Active Substance: DEOXYCHOLIC ACID
     Indication: Lipolysis procedure
     Route: 058
     Dates: start: 20210108
  2. TYLENOL [Concomitant]
     Active Substance: ACETAMINOPHEN
  3. IBUPROFEN [Concomitant]
     Active Substance: IBUPROFEN

REACTIONS (10)
  - Drug ineffective [None]
  - Paradoxical drug reaction [None]
  - Product communication issue [None]
  - Scar [None]
  - Adverse reaction [None]
  - Impaired healing [None]
  - Product advertising issue [None]
  - Emotional distress [None]
  - Post procedural complication [None]
  - Iatrogenic injury [None]

NARRATIVE: CASE EVENT DATE: 20210108
